FAERS Safety Report 8903253 (Version 2)
Quarter: 2012Q4

REPORT INFORMATION
  Report Type: 
  Country: CO (occurrence: CO)
  Receive Date: 20121112
  Receipt Date: 20121219
  Transmission Date: 20130627
  Serious: Yes (Hospitalization)
  Sender: FDA-Public Use
  Company Number: CO-009507513-1211COL003322

PATIENT
  Age: 56 Year
  Sex: Female

DRUGS (4)
  1. VICTRELIS [Suspect]
     Dosage: 2400 mg, qd
     Dates: start: 20121025, end: 20121106
  2. PEG-INTRON [Suspect]
     Dosage: 100 Microgram, qw
     Dates: start: 20120927, end: 20121106
  3. RIBAVIRIN [Suspect]
     Dosage: 100 mg, qd
     Dates: start: 20120927, end: 20121106
  4. RIBAVIRIN [Suspect]
     Dosage: 600 UNK, UNK

REACTIONS (7)
  - Bladder spasm [Not Recovered/Not Resolved]
  - Urinary tract infection [Not Recovered/Not Resolved]
  - Dysuria [Not Recovered/Not Resolved]
  - Anaemia [Not Recovered/Not Resolved]
  - Asthenia [Not Recovered/Not Resolved]
  - Fatigue [Unknown]
  - Asthenia [Unknown]
